FAERS Safety Report 5343200-9 (Version None)
Quarter: 2007Q2

REPORT INFORMATION
  Report Type: 
  Country: None (occurrence: None)
  Receive Date: 20070416
  Receipt Date: 20070228
  Transmission Date: 20071010
  Serious: No
  Sender: FDA-Public Use
  Company Number: 2007SP000685

PATIENT
  Age: 64 Year
  Sex: Female
  Weight: 70.3075 kg

DRUGS (8)
  1. LUNESTA [Suspect]
     Indication: INSOMNIA
     Dosage: 2 MG;HS;ORAL
     Route: 048
     Dates: start: 20070219, end: 20070225
  2. MUSCLE RELAXANTS [Concomitant]
  3. METHADONE HCL [Concomitant]
  4. TEGASEROD MALEATE [Concomitant]
  5. HYDROCODONE BITARTRATE [Concomitant]
  6. CALCIUM CHLORIDE [Concomitant]
  7. CENTRUM SILVER [Concomitant]
  8. TRAZODONE HCL [Concomitant]

REACTIONS (1)
  - MIDDLE INSOMNIA [None]
